FAERS Safety Report 6987853-8 (Version None)
Quarter: 2010Q3

REPORT INFORMATION
  Report Type: 
  Country: None (occurrence: None)
  Receive Date: 20100914
  Receipt Date: 20100901
  Transmission Date: 20110219
  Serious: Yes (Disabling)
  Sender: FDA-Public Use
  Company Number: 2010MA002371

PATIENT
  Sex: Female

DRUGS (8)
  1. AMLODIPINE BESYLATE [Suspect]
     Indication: HYPERTENSION
     Dates: start: 20091001
  2. RITONAVIR [Suspect]
     Indication: HIV INFECTION
     Dosage: 100 MG; QD; PO
     Route: 048
     Dates: start: 20090920, end: 20100511
  3. DARUNAVIR (NO PREF. NAME) [Suspect]
     Indication: HIV INFECTION
     Dosage: 800 MG; QD; PO
     Route: 048
     Dates: start: 20090920, end: 20100511
  4. AMLODIPINE [Suspect]
     Indication: HYPERTENSION
     Dates: start: 20050101
  5. DAPSONE [Concomitant]
  6. COTRIM [Concomitant]
  7. KIVEXA [Concomitant]
  8. DOXAZOSIN MESYLATE [Concomitant]

REACTIONS (7)
  - AIDS RETINOPATHY [None]
  - BONE MARROW FAILURE [None]
  - CYTOMEGALOVIRUS CHORIORETINITIS [None]
  - DRUG INTERACTION [None]
  - DYSPNOEA EXERTIONAL [None]
  - OEDEMA PERIPHERAL [None]
  - STRONGYLOIDIASIS [None]
